FAERS Safety Report 6872575-4 (Version None)
Quarter: 2010Q3

REPORT INFORMATION
  Report Type: 
  Country: None (occurrence: None)
  Receive Date: 20100723
  Receipt Date: 20100719
  Transmission Date: 20110219
  Serious: Yes (Life-Threatening, Hospitalization, Other)
  Sender: FDA-Public Use
  Company Number: PHHY2010DE47863

PATIENT
  Age: 86 Year
  Sex: Female

DRUGS (9)
  1. LEPONEX [Suspect]
     Indication: HALLUCINATION
     Dosage: 18.75 MG, QD
     Route: 048
     Dates: start: 20100228, end: 20100502
  2. MIRTAZAPINE [Suspect]
     Indication: DEPRESSION
     Dosage: 1 DF, QD
     Route: 048
     Dates: start: 20100228, end: 20100428
  3. ATENOLOL [Concomitant]
     Indication: HYPERTENSION
     Dosage: 1 DF, QD
     Route: 048
     Dates: start: 20091201
  4. LACTULOSE [Concomitant]
     Indication: CONSTIPATION
     Dosage: 6.67 G, BID (10ML ~ 6,67G LACTULOSE (20ML ~13.34G LACTULOSE)
     Route: 048
     Dates: start: 20091201
  5. ZOPICLON [Concomitant]
     Indication: INITIAL INSOMNIA
     Dosage: 1 DF, QD
     Route: 048
     Dates: start: 20091201, end: 20100502
  6. XIPAMIDE [Concomitant]
     Indication: RENAL FAILURE
     Dosage: 1 DF, QD
     Route: 048
     Dates: start: 20091201
  7. TIAPRIDE HYDROCHLORIDE [Concomitant]
     Indication: DYSKINESIA
     Dosage: 3 DF, QD
     Route: 048
  8. PANTOZOL [Concomitant]
     Indication: PROPHYLAXIS AGAINST GASTROINTESTINAL ULCER
     Dosage: 1 DF, QD
     Route: 048
  9. EXELON [Concomitant]
     Indication: DEMENTIA
     Dosage: 4.6 MG
     Route: 062
     Dates: start: 20100415

REACTIONS (15)
  - ACQUIRED DIAPHRAGMATIC EVENTRATION [None]
  - AGRANULOCYTOSIS [None]
  - BLOOD CREATININE INCREASED [None]
  - BRONCHOPNEUMONIA [None]
  - C-REACTIVE PROTEIN INCREASED [None]
  - COUGH [None]
  - DYSPNOEA AT REST [None]
  - GENERAL PHYSICAL HEALTH DETERIORATION [None]
  - PHARYNGEAL DISORDER [None]
  - PYREXIA [None]
  - RALES [None]
  - SEPSIS [None]
  - SPUTUM DISCOLOURED [None]
  - TACHYPNOEA [None]
  - WHITE BLOOD CELL COUNT DECREASED [None]
